FAERS Safety Report 6692407-7 (Version None)
Quarter: 2010Q2

REPORT INFORMATION
  Report Type: 
  Country: None (occurrence: None)
  Receive Date: 20100422
  Receipt Date: 20100414
  Transmission Date: 20101027
  Serious: Yes (Other)
  Sender: FDA-Public Use
  Company Number: US-SANOFI-AVENTIS-2010SA021917

PATIENT
  Sex: Male

DRUGS (3)
  1. LANTUS [Suspect]
     Indication: DIABETES MELLITUS
     Route: 058
  2. APIDRA [Suspect]
     Indication: DIABETES MELLITUS
     Dosage: WITH MEALS DOSE:5 UNIT(S)
     Route: 058
     Dates: start: 20050101
  3. OPTICLICK [Suspect]
     Dates: start: 20050101

REACTIONS (1)
  - CEREBROVASCULAR ACCIDENT [None]
